FAERS Safety Report 4958706-1 (Version None)
Quarter: 2006Q1

REPORT INFORMATION
  Report Type: 
  Country: None (occurrence: None)
  Receive Date: 20060330
  Receipt Date: 20051213
  Transmission Date: 20060701
  Serious: Yes (Hospitalization)
  Sender: FDA-Public Use
  Company Number: US-MERCK-0512USA02080

PATIENT
  Age: 64 Year
  Sex: Female
  Weight: 84 kg

DRUGS (2)
  1. VIOXX [Suspect]
     Indication: ARTHRALGIA
     Route: 048
     Dates: start: 20040729, end: 20040101
  2. IBUPROFEN [Concomitant]
     Route: 065

REACTIONS (3)
  - CARDIAC FAILURE CONGESTIVE [None]
  - HYPERTENSION [None]
  - LIMB DISCOMFORT [None]
